FAERS Safety Report 4641980-9 (Version None)
Quarter: 2005Q2

REPORT INFORMATION
  Report Type: 
  Country: None (occurrence: None)
  Receive Date: 20050420
  Receipt Date: 20050331
  Transmission Date: 20051028
  Serious: Yes (Death, Hospitalization, Other)
  Sender: FDA-Public Use
  Company Number: USA050393486

PATIENT
  Age: 60 Year
  Sex: Female

DRUGS (16)
  1. GEMZAR [Suspect]
     Indication: NON-SMALL CELL LUNG CANCER
     Dosage: 900 MG
     Dates: start: 20040223, end: 20040412
  2. CARBOPLATIN [Concomitant]
  3. AMBIEN [Concomitant]
  4. QUININE SULFATE [Concomitant]
  5. COMPRAZINE (PROCHLORPERAZINE EDISYLATE) [Concomitant]
  6. ALBUTEROL [Concomitant]
  7. PAIN MEDS [Concomitant]
  8. ATIVAN [Concomitant]
  9. ZOFRAN [Concomitant]
  10. TRAZODONE HCL [Concomitant]
  11. ENDOCET [Concomitant]
  12. PREMPRO [Concomitant]
  13. PAXIL [Concomitant]
  14. LASIX [Concomitant]
  15. XANAX (ALPRAZOLAM DUM) [Concomitant]
  16. TYLENOL (CAPLET) [Concomitant]

REACTIONS (44)
  - ACTIVATED PARTIAL THROMBOPLASTIN TIME PROLONGED [None]
  - ALANINE AMINOTRANSFERASE INCREASED [None]
  - ASCITES [None]
  - ASPARTATE AMINOTRANSFERASE INCREASED [None]
  - ASTHENIA [None]
  - ATHEROSCLEROSIS [None]
  - BILIRUBIN CONJUGATED INCREASED [None]
  - BLOOD ALBUMIN INCREASED [None]
  - BLOOD ALKALINE PHOSPHATASE INCREASED [None]
  - BLOOD BILIRUBIN INCREASED [None]
  - BLOOD CREATININE INCREASED [None]
  - BLOOD UREA INCREASED [None]
  - CHEST DISCOMFORT [None]
  - CHILLS [None]
  - CHOLESTASIS [None]
  - CONFUSIONAL STATE [None]
  - CONSTIPATION [None]
  - DECREASED APPETITE [None]
  - DYSPNOEA [None]
  - EXCORIATION [None]
  - FALL [None]
  - FATIGUE [None]
  - HAEMATOCRIT DECREASED [None]
  - HAEMOGLOBIN DECREASED [None]
  - HAEMOPTYSIS [None]
  - HAEMORRHAGE [None]
  - HEAD INJURY [None]
  - HEPATIC ENCEPHALOPATHY [None]
  - HEPATIC FAILURE [None]
  - HEPATIC NECROSIS [None]
  - INTERNATIONAL NORMALISED RATIO INCREASED [None]
  - JAUNDICE [None]
  - LETHARGY [None]
  - MENTAL IMPAIRMENT [None]
  - NEUROPATHY [None]
  - OEDEMA [None]
  - PLATELET COUNT DECREASED [None]
  - PROTHROMBIN TIME PROLONGED [None]
  - RED BLOOD CELL COUNT DECREASED [None]
  - RESTLESSNESS [None]
  - SOCIAL AVOIDANT BEHAVIOUR [None]
  - SOMNOLENCE [None]
  - TREMOR [None]
  - VISION BLURRED [None]
